FAERS Safety Report 9962927 (Version 2)
Quarter: 2014Q1

REPORT INFORMATION
  Report Type: Report from Study
  Country: US (occurrence: US)
  Receive Date: 20140305
  Receipt Date: 20140305
  Transmission Date: 20141002
  Serious: No
  Sender: FDA-Public Use
  Company Number: US-ABBVIE-13P-163-1101551-00

PATIENT
  Age: 49 Year
  Sex: Female

DRUGS (3)
  1. HUMIRA [Suspect]
     Indication: COLITIS ULCERATIVE
     Dates: start: 20130530, end: 20130530
  2. HUMIRA [Suspect]
     Dates: start: 20130709, end: 20130709
  3. HUMIRA [Suspect]

REACTIONS (2)
  - Drug dispensing error [Unknown]
  - Injection site haemorrhage [Recovered/Resolved]
